FAERS Safety Report 25547260 (Version 1)
Quarter: 2025Q3

REPORT INFORMATION
  Report Type: Spontaneous
  Country: US (occurrence: US)
  Receive Date: 20250714
  Receipt Date: 20250714
  Transmission Date: 20251020
  Serious: No
  Sender: BEIGENE
  Company Number: US-BEIGENE-BGN-2025-009983

PATIENT
  Age: 78 Year

DRUGS (1)
  1. TEVIMBRA [Suspect]
     Active Substance: TISLELIZUMAB-JSGR
     Indication: Product used for unknown indication

REACTIONS (8)
  - Malaise [Unknown]
  - Pain [Unknown]
  - Headache [Unknown]
  - Vomiting [Unknown]
  - Nausea [Unknown]
  - Feeding disorder [Unknown]
  - Asthenia [Unknown]
  - Dizziness [Unknown]
